FAERS Safety Report 15543065 (Version 2)
Quarter: 2018Q4

REPORT INFORMATION
  Report Type: Spontaneous
  Country: EE (occurrence: EE)
  Receive Date: 20181023
  Receipt Date: 20181102
  Transmission Date: 20190205
  Serious: Yes (Other)
  Sender: FDA-Public Use
  Company Number: EE-PFIZER INC-2018430237

PATIENT
  Age: 27 Year
  Sex: Female

DRUGS (7)
  1. OXAZEPAM. [Concomitant]
     Active Substance: OXAZEPAM
     Indication: DEPRESSION
     Dosage: UNK
     Dates: start: 2015
  2. VALDOXAN [Suspect]
     Active Substance: AGOMELATINE
     Dosage: UNK, 1X/DAY
     Route: 048
     Dates: start: 2017
  3. VALDOXAN [Suspect]
     Active Substance: AGOMELATINE
     Indication: DEPRESSION
     Dosage: 25 MG, 1X/DAY, QD
     Dates: start: 2015
  4. VALDOXAN [Suspect]
     Active Substance: AGOMELATINE
     Dosage: 12.5 MG, 1X/DAY, QD
     Dates: start: 2016
  5. DIAZEPAM. [Concomitant]
     Active Substance: DIAZEPAM
     Dosage: UNK
  6. ESCITALOPRAM [Suspect]
     Active Substance: ESCITALOPRAM OXALATE
     Dosage: UNK
     Dates: start: 2015
  7. EFFEXOR XR [Suspect]
     Active Substance: VENLAFAXINE HYDROCHLORIDE
     Indication: DEPRESSION
     Dosage: 37.5 MG, 1X/DAY, QD
     Dates: start: 2015

REACTIONS (18)
  - Impaired quality of life [Not Recovered/Not Resolved]
  - Palpitations [Not Recovered/Not Resolved]
  - Derealisation [Not Recovered/Not Resolved]
  - Panic disorder [Not Recovered/Not Resolved]
  - Product use issue [Not Recovered/Not Resolved]
  - Suicidal ideation [Unknown]
  - Anxiety [Recovered/Resolved]
  - Restlessness [Recovered/Resolved]
  - Anger [Not Recovered/Not Resolved]
  - Fear of death [Not Recovered/Not Resolved]
  - Visual impairment [Not Recovered/Not Resolved]
  - Nightmare [Not Recovered/Not Resolved]
  - Insomnia [Not Recovered/Not Resolved]
  - Vomiting [Not Recovered/Not Resolved]
  - Paraesthesia [Not Recovered/Not Resolved]
  - Akathisia [Unknown]
  - Weight decreased [Not Recovered/Not Resolved]
  - Fatigue [Not Recovered/Not Resolved]

NARRATIVE: CASE EVENT DATE: 2016
